FAERS Safety Report 13743627 (Version 3)
Quarter: 2017Q3

REPORT INFORMATION
  Report Type: Spontaneous
  Country: US (occurrence: US)
  Receive Date: 20170711
  Receipt Date: 20170816
  Transmission Date: 20171127
  Serious: No
  Sender: FDA-Public Use
  Company Number: US-009507513-1706USA007480

PATIENT
  Age: 83 Year
  Sex: Male

DRUGS (2)
  1. ASMANEX [Suspect]
     Active Substance: MOMETASONE FUROATE
     Dosage: 2 INHALATIONS ONCE DAILY
     Route: 055
     Dates: start: 20170707
  2. ASMANEX [Suspect]
     Active Substance: MOMETASONE FUROATE
     Dosage: 2 INHALATIONS ONCE DAILY
     Route: 055
     Dates: start: 20170706, end: 20170707

REACTIONS (3)
  - Product quality issue [Unknown]
  - No adverse event [Unknown]
  - Drug dose omission [Unknown]

NARRATIVE: CASE EVENT DATE: 201707
